FAERS Safety Report 6919193-7 (Version None)
Quarter: 2010Q3

REPORT INFORMATION
  Report Type: 
  Country: None (occurrence: None)
  Receive Date: 20100811
  Receipt Date: 20100802
  Transmission Date: 20110219
  Serious: Yes (Other)
  Sender: FDA-Public Use
  Company Number: DE-PFIZER INC-2010096518

PATIENT
  Sex: Female

DRUGS (2)
  1. SAYANA [Suspect]
     Dosage: UNK
  2. CYCLOKAPRON [Interacting]
     Dosage: UNK
     Dates: start: 20090801

REACTIONS (3)
  - DRUG INTERACTION [None]
  - POLYURIA [None]
  - WEIGHT DECREASED [None]
